FAERS Safety Report 5466547-4 (Version None)
Quarter: 2007Q3

REPORT INFORMATION
  Report Type: 
  Country: None (occurrence: None)
  Receive Date: 20070820
  Receipt Date: 20070611
  Transmission Date: 20080115
  Serious: No
  Sender: FDA-Public Use
  Company Number: WAES 0706USA01942

PATIENT
  Age: 77 Year
  Sex: Female
  Weight: 51.7101 kg

DRUGS (14)
  1. JANUVIA [Suspect]
     Dosage: 100 MG PO, 50 MG PO
     Route: 048
     Dates: start: 20061205, end: 20061210
  2. JANUVIA [Suspect]
     Dosage: 100 MG PO, 50 MG PO
     Route: 048
     Dates: start: 20061211
  3. ACTOS [Concomitant]
  4. CADUET [Concomitant]
  5. FOSAMAX [Concomitant]
  6. GLUCOPHAGE [Concomitant]
  7. LOTENSIN [Concomitant]
  8. PRILOSEC [Concomitant]
  9. ASPIRIN [Concomitant]
  10. CALCIUM [Concomitant]
  11. HYDROCHLOROTHIAZIDE [Concomitant]
  12. IRON + VITAMINS [Concomitant]
  13. METFORMIN [Concomitant]
  14. SPIRONOLACTONE [Concomitant]

REACTIONS (2)
  - BLOOD GLUCOSE DECREASED [None]
  - DIZZINESS [None]
